FAERS Safety Report 25680835 (Version 1)
Quarter: 2025Q3

REPORT INFORMATION
  Report Type: Spontaneous
  Country: CH (occurrence: CH)
  Receive Date: 20250814
  Receipt Date: 20250814
  Transmission Date: 20251021
  Serious: Yes (Hospitalization, Other)
  Sender: NOVITIUM PHARMA
  Company Number: CH-NOVITIUMPHARMA-2025CHNVP01987

PATIENT
  Age: 11 Year
  Sex: Female

DRUGS (5)
  1. PREDNISONE [Suspect]
     Active Substance: PREDNISONE
     Indication: Haemophagocytic lymphohistiocytosis
     Route: 048
  2. AZITHROMYCIN [Concomitant]
     Active Substance: AZITHROMYCIN
  3. CYCLOSPORINE [Concomitant]
     Active Substance: CYCLOSPORINE
     Indication: Haemophagocytic lymphohistiocytosis
  4. TOCILIZUMAB [Concomitant]
     Active Substance: TOCILIZUMAB
     Indication: Haemophagocytic lymphohistiocytosis
  5. ANAKINRA [Concomitant]
     Active Substance: ANAKINRA
     Indication: Haemophagocytic lymphohistiocytosis

REACTIONS (11)
  - Ocular hypertension [Unknown]
  - Deep vein thrombosis [Unknown]
  - Cytomegalovirus infection reactivation [Unknown]
  - Type 1 diabetes mellitus [Unknown]
  - Oesophageal candidiasis [Unknown]
  - Decubitus ulcer [Unknown]
  - Thrombocytopenia [Unknown]
  - Osteopenia [Unknown]
  - Anaemia [Unknown]
  - Hypertension [Unknown]
  - Myopathy [Unknown]
